FAERS Safety Report 20406837 (Version 1)
Quarter: 2022Q1

REPORT INFORMATION
  Report Type: Spontaneous
  Country: RO (occurrence: RO)
  Receive Date: 20220131
  Receipt Date: 20220131
  Transmission Date: 20220423
  Serious: Yes (Death, Other)
  Sender: FDA-Public Use
  Company Number: RO-LUPIN PHARMACEUTICALS INC.-2022-01096

PATIENT
  Age: 67 Year
  Sex: Male

DRUGS (11)
  1. METHYLPREDNISOLONE [Suspect]
     Active Substance: METHYLPREDNISOLONE
     Indication: IgA nephropathy
     Dosage: UNK, QD (PULSE THERAPY; AS A PART OF INDUCTION THERAPY)
     Route: 065
  2. METHYLPREDNISOLONE [Suspect]
     Active Substance: METHYLPREDNISOLONE
     Indication: Antineutrophil cytoplasmic antibody positive
  3. PREDNISONE [Suspect]
     Active Substance: PREDNISONE
     Indication: IgA nephropathy
     Dosage: INITIAL DOSE; AS A PART OF INDUCTION THERAPY
     Route: 048
  4. PREDNISONE [Suspect]
     Active Substance: PREDNISONE
     Indication: Antineutrophil cytoplasmic antibody positive
     Dosage: 0.25 MILLIGRAM/KILOGRAM, QD (BY 1 MONTH; AS A PART OF INDUCTION THERAPY)
     Route: 048
  5. PREDNISONE [Suspect]
     Active Substance: PREDNISONE
     Dosage: 15 MILLIGRAM, QD (AT 3 MONTH; AS A PART OF INDUCTION THERAPY)
     Route: 048
  6. PREDNISONE [Suspect]
     Active Substance: PREDNISONE
     Dosage: 10 MILLIGRAM, QD (AT 4 MONTH; AS A PART OF INDUCTION THERAPY)
     Route: 048
  7. PREDNISONE [Suspect]
     Active Substance: PREDNISONE
     Dosage: 5 MILLIGRAM, QD (FROM 5 TO 12 MONTH; AS A PART OF INDUCTION THERAPY)
     Route: 048
  8. CYCLOPHOSPHAMIDE [Suspect]
     Active Substance: CYCLOPHOSPHAMIDE
     Indication: IgA nephropathy
     Dosage: 500 MILLIGRAM/SQ. METER EVERY 4 WEEKS (AS A PART OF INDUCTION THERAPY )
     Route: 065
  9. CYCLOPHOSPHAMIDE [Suspect]
     Active Substance: CYCLOPHOSPHAMIDE
     Indication: Antineutrophil cytoplasmic antibody positive
  10. AZATHIOPRINE [Suspect]
     Active Substance: AZATHIOPRINE
     Indication: IgA nephropathy
     Dosage: 2 MILLIGRAM/KILOGRAM, QD (USED AS MAINTENANCE THERAPY FOR AT LEAST 12 MONTHS AFTER REMISSION)
     Route: 065
  11. AZATHIOPRINE [Suspect]
     Active Substance: AZATHIOPRINE
     Indication: Antineutrophil cytoplasmic antibody positive

REACTIONS (2)
  - Pneumonia pseudomonal [Fatal]
  - Septic shock [Fatal]
